FAERS Safety Report 4983559-5 (Version None)
Quarter: 2006Q2

REPORT INFORMATION
  Report Type: 
  Country: None (occurrence: None)
  Receive Date: 20060419
  Receipt Date: 20060404
  Transmission Date: 20061013
  Serious: Yes (Hospitalization, Other)
  Sender: FDA-Public Use
  Company Number: 2006JP000988

PATIENT
  Age: 45 Year
  Sex: Male
  Weight: 56.9 kg

DRUGS (5)
  1. TACROLIMUS CAPSULES (TACROLIMUS) CAPSULES [Suspect]
     Indication: RENAL TRANSPLANT
     Dosage: ORAL
     Route: 048
     Dates: start: 20051103
  2. MYCOPHENOLATE MOFETIL [Concomitant]
  3. PREDNISOLONE [Concomitant]
  4. NIFEDIPINE [Concomitant]
  5. PHOSPHATE NOVARTIS  (POTASSIUM BICARBONATE, SODIUM PHOSPHATE MONOBASIC [Concomitant]

REACTIONS (5)
  - DEHYDRATION [None]
  - ENTERITIS [None]
  - NAUSEA [None]
  - OESOPHAGITIS ULCERATIVE [None]
  - VOMITING [None]
